FAERS Safety Report 7241826-9 (Version None)
Quarter: 2011Q1

REPORT INFORMATION
  Report Type: 
  Country: None (occurrence: None)
  Receive Date: 20110124
  Receipt Date: 20110114
  Transmission Date: 20110831
  Serious: Yes (Disabling, Other)
  Sender: FDA-Public Use
  Company Number: US-CELGENEUS-163-20785-10121802

PATIENT
  Sex: Male

DRUGS (5)
  1. THALOMID [Suspect]
     Indication: MULTIPLE MYELOMA
     Route: 048
     Dates: start: 20091101
  2. ARICEPT [Concomitant]
     Dosage: 1
     Route: 048
     Dates: start: 20070101
  3. AGGRENOX [Concomitant]
     Dosage: 1
     Route: 065
     Dates: start: 20090101
  4. COUMADIN [Concomitant]
     Route: 065
     Dates: start: 20100101
  5. ATIVAN [Concomitant]
     Route: 065
     Dates: start: 20100101

REACTIONS (1)
  - DEMENTIA ALZHEIMER'S TYPE [None]
